FAERS Safety Report 9872902 (Version 2)
Quarter: 2014Q1

REPORT INFORMATION
  Report Type: Other
  Country: US (occurrence: US)
  Receive Date: 20140206
  Receipt Date: 20140206
  Transmission Date: 20141002
  Serious: No
  Sender: FDA-Public Use
  Company Number: US-ACORDA-ACO_100880_2013

PATIENT
  Age: 62 Year
  Sex: Female

DRUGS (2)
  1. AMPYRA [Suspect]
     Indication: GAIT DISTURBANCE
     Dosage: 10 MG, BID
     Route: 048
  2. AMPYRA [Suspect]
     Dosage: 10 MG, QD
     Route: 048
     Dates: end: 20131214

REACTIONS (4)
  - Bedridden [Recovered/Resolved]
  - Abasia [Recovered/Resolved]
  - Frustration [Not Recovered/Not Resolved]
  - Inappropriate schedule of drug administration [Unknown]
